FAERS Safety Report 8711962 (Version 3)
Quarter: 2012Q4

REPORT INFORMATION
  Report Type: 
  Country: BE (occurrence: BE)
  Receive Date: 20120807
  Receipt Date: 20121109
  Transmission Date: 20130627
  Serious: Yes (Death)
  Sender: FDA-Public Use
  Company Number: BE-ELI_LILLY_AND_COMPANY-BE201208001067

PATIENT
  Age: 36 Year
  Sex: Male

DRUGS (2)
  1. EFIENT [Suspect]
     Indication: ACUTE MYOCARDIAL INFARCTION
     Dosage: 10 mg, UNK
     Route: 065
     Dates: start: 20120603
  2. AAS [Concomitant]

REACTIONS (1)
  - Sudden death [Fatal]
